FAERS Safety Report 4493850-7 (Version None)
Quarter: 2004Q4

REPORT INFORMATION
  Report Type: 
  Country: None (occurrence: None)
  Receive Date: 20041103
  Receipt Date: 20041103
  Transmission Date: 20050328
  Serious: Yes (Hospitalization)
  Sender: FDA-Public Use
  Company Number: None

PATIENT
  Sex: Female

DRUGS (4)
  1. SALINE-NON-BACTERIOSTATI ABBOTT LABORATORIES [Suspect]
  2. SALINE-NON-BACTERIOSTATI ABBOTT LABORATORIES [Suspect]
  3. ISOVUE-128 [Suspect]
  4. LIDOCAINE [Concomitant]

REACTIONS (4)
  - ASPIRATION JOINT ABNORMAL [None]
  - BACTERIAL CULTURE POSITIVE [None]
  - PHARMACEUTICAL PRODUCT COMPLAINT [None]
  - POST PROCEDURAL COMPLICATION [None]
